FAERS Safety Report 15346742 (Version 1)
Quarter: 2018Q4

REPORT INFORMATION
  Report Type: Spontaneous
  Country: JP (occurrence: JP)
  Receive Date: 20180904
  Receipt Date: 20180904
  Transmission Date: 20190204
  Serious: Yes (Other)
  Sender: FDA-Public Use
  Company Number: JP-MYLANLABS-2018M1064123

PATIENT
  Age: 40 Year
  Sex: Male

DRUGS (7)
  1. OLOPATADINE. [Concomitant]
     Active Substance: OLOPATADINE
     Indication: STEVENS-JOHNSON SYNDROME
     Route: 048
  2. FLUOROMETHOLONE. [Concomitant]
     Active Substance: FLUOROMETHOLONE
     Indication: STEVENS-JOHNSON SYNDROME
     Route: 061
  3. METHYLPREDNISOLONE SODIUM SUCCINATE. [Concomitant]
     Active Substance: METHYLPREDNISOLONE SODIUM SUCCINATE
     Indication: STEVENS-JOHNSON SYNDROME
     Dosage: 1000 MG, QD
     Route: 065
  4. PREDNISOLONE. [Suspect]
     Active Substance: PREDNISOLONE
     Indication: STEVENS-JOHNSON SYNDROME
     Dosage: 80 MG, QD
     Route: 048
  5. PABRON S GOLD [Suspect]
     Active Substance: ACETAMINOPHEN\BROMHEXINE\CAFFEINE\CARBINOXAMINE\DIHYDROCODEINE PHOSPHATE\LYSOZYME HYDROCHLORIDE\METHYLEPHEDRINE HYDROCHLORIDE, (+/-)-\SULBUTIAMINE
     Indication: NAUSEA
     Dosage: TOOK 3 TABLETS
     Route: 065
  6. PREDNISOLONE. [Suspect]
     Active Substance: PREDNISOLONE
     Dosage: 20 MG, QD
     Route: 048
  7. BETAMETHASONE BUTYRATE PROPIONATE [Concomitant]
     Active Substance: BETAMETHASONE BUTYRATE PROPIONATE
     Indication: STEVENS-JOHNSON SYNDROME
     Route: 065

REACTIONS (1)
  - False negative investigation result [Recovered/Resolved]
